FAERS Safety Report 4313472-8 (Version None)
Quarter: 2004Q1

REPORT INFORMATION
  Report Type: 
  Country: None (occurrence: None)
  Receive Date: 20040304
  Receipt Date: 20040216
  Transmission Date: 20041129
  Serious: Yes (Other)
  Sender: FDA-Public Use
  Company Number: USA040259445

PATIENT
  Age: 58 Year
  Sex: Female
  Weight: 82 kg

DRUGS (11)
  1. HUMULIN N [Suspect]
     Indication: DIABETES MELLITUS
     Dates: start: 20040101
  2. ACTOS [Concomitant]
  3. PROCRIT (ERYTHROPOETIN) [Concomitant]
  4. PROMETHAZINE [Concomitant]
  5. ALLEGRA [Concomitant]
  6. PLENDIL [Concomitant]
  7. SYNTHROID [Concomitant]
  8. FUROSEMIDE [Concomitant]
  9. ZOCOR [Concomitant]
  10. PROTONIX [Concomitant]
  11. PLAVIX [Concomitant]

REACTIONS (3)
  - BLOOD GLUCOSE INCREASED [None]
  - PHARMACEUTICAL PRODUCT COMPLAINT [None]
  - RENAL FAILURE [None]
